FAERS Safety Report 14301903 (Version 1)
Quarter: 2017Q4

REPORT INFORMATION
  Report Type: Not Available
  Country: None (occurrence: US)
  Receive Date: 20171219
  Receipt Date: 20171219
  Transmission Date: 20180321
  Serious: No
  Sender: FDA-Public Use
  Company Number: US-AKORN-75018

PATIENT

DRUGS (1)
  1. AZASITE (AZITHROMYCIN OPHTHALMIC SOLUTION) [Suspect]
     Active Substance: AZITHROMYCIN

REACTIONS (1)
  - Eye irritation [None]
